FAERS Safety Report 5949276-X (Version None)
Quarter: 2008Q4

REPORT INFORMATION
  Report Type: 
  Country: None (occurrence: None)
  Receive Date: 20081111
  Receipt Date: 20081106
  Transmission Date: 20090506
  Serious: Yes (Other)
  Sender: FDA-Public Use
  Company Number: US-AMGEN-US317698

PATIENT
  Sex: Male

DRUGS (15)
  1. EPOGEN [Suspect]
     Indication: DIALYSIS
     Route: 042
  2. HEPARIN [Concomitant]
  3. ALLOPURINOL [Concomitant]
  4. ASPIRIN [Concomitant]
  5. CALCIUM ACETATE [Concomitant]
  6. PLAVIX [Concomitant]
  7. FAMOTIDINE [Concomitant]
  8. LISINOPRIL [Concomitant]
  9. NEPHRO-CAPS [Concomitant]
  10. PREDNISONE TAB [Concomitant]
  11. SEVELAMER [Concomitant]
  12. SIMVASTATIN [Concomitant]
  13. METOPROLOL TARTRATE [Concomitant]
  14. BLOOD CELLS, PACKED HUMAN [Concomitant]
     Dates: start: 20060101
  15. VITAMIN B-12 [Concomitant]

REACTIONS (1)
  - THERAPEUTIC RESPONSE DECREASED [None]
